FAERS Safety Report 7970542-0 (Version None)
Quarter: 2011Q4

REPORT INFORMATION
  Report Type: 
  Country: None (occurrence: None)
  Receive Date: 20111212
  Receipt Date: 20111202
  Transmission Date: 20120403
  Serious: Yes (Death, Other)
  Sender: FDA-Public Use
  Company Number: CA-BAYER-200926100NA

PATIENT
  Age: 26 Year
  Sex: Female
  Weight: 135 kg

DRUGS (5)
  1. YASMIN [Suspect]
     Indication: ORAL CONTRACEPTION
     Dosage: 1 DF, QD
     Route: 048
     Dates: start: 20090305, end: 20090613
  2. SYMBICORT [Concomitant]
     Indication: ASTHMA
     Route: 065
  3. NAPROXEN [Concomitant]
     Indication: MUSCLE SPASMS
  4. VENTOLIN [Concomitant]
     Dosage: UNK
     Dates: start: 20090401
  5. NAPROXEN [Concomitant]
     Indication: SCIATICA
     Dosage: 750 MG BID
     Route: 048

REACTIONS (13)
  - DYSPNOEA [None]
  - HEART RATE INCREASED [None]
  - PULMONARY EMBOLISM [None]
  - RESPIRATORY DISTRESS [None]
  - CHEST PAIN [None]
  - CHEST X-RAY ABNORMAL [None]
  - HYPOXIA [None]
  - PRESYNCOPE [None]
  - BACK PAIN [None]
  - SYNCOPE [None]
  - LOSS OF CONSCIOUSNESS [None]
  - ELECTROCARDIOGRAM ST SEGMENT ELEVATION [None]
  - CARDIAC ARREST [None]
